FAERS Safety Report 23633792 (Version 1)
Quarter: 2024Q1

REPORT INFORMATION
  Report Type: Spontaneous
  Country: US (occurrence: None)
  Receive Date: 20240314
  Receipt Date: 20240314
  Transmission Date: 20240410
  Serious: Yes (Other)
  Sender: FDA-Public Use
  Company Number: None

PATIENT
  Age: 79 Year
  Sex: Female

DRUGS (1)
  1. FOSAMAX [Suspect]
     Active Substance: ALENDRONATE SODIUM
     Dates: start: 20231130, end: 20240207

REACTIONS (5)
  - Pruritus [None]
  - Pain [None]
  - Muscular weakness [None]
  - Fall [None]
  - Walking aid user [None]

NARRATIVE: CASE EVENT DATE: 20240214
